FAERS Safety Report 20188540 (Version 2)
Quarter: 2021Q4

REPORT INFORMATION
  Report Type: Spontaneous
  Country: JP (occurrence: JP)
  Receive Date: 20211215
  Receipt Date: 20211230
  Transmission Date: 20220303
  Serious: Yes (Hospitalization)
  Sender: FDA-Public Use
  Company Number: JP-CHUGAI-2021031333

PATIENT
  Age: 75 Year
  Sex: Male

DRUGS (2)
  1. TECENTRIQ [Suspect]
     Active Substance: ATEZOLIZUMAB
     Indication: Hepatocellular carcinoma
     Dosage: 1200 MILLIGRAM, ONCE/3WEEKS
     Route: 041
     Dates: start: 20210319, end: 20211028
  2. AVASTIN [Suspect]
     Active Substance: BEVACIZUMAB
     Indication: Hepatocellular carcinoma
     Dosage: 15 MILLIGRAM/KILOGRAM, ONCE/3WEEKS
     Route: 041
     Dates: start: 20210319

REACTIONS (1)
  - Interstitial lung disease [Not Recovered/Not Resolved]

NARRATIVE: CASE EVENT DATE: 20211101
